FAERS Safety Report 14870606 (Version 1)
Quarter: 2018Q2

REPORT INFORMATION
  Report Type: Spontaneous
  Country: US (occurrence: US)
  Receive Date: 20180423
  Receipt Date: 20180423
  Transmission Date: 20180711
  Serious: No
  Sender: FDA-Public Use
  Company Number: None

PATIENT
  Age: 75 Year
  Sex: Female

DRUGS (1)
  1. EXJADE [Suspect]
     Active Substance: DEFERASIROX
     Indication: MYELODYSPLASTIC SYNDROME
     Dosage: DISSOLVE 4 TABELTS
     Route: 048
     Dates: start: 20160120

REACTIONS (2)
  - Therapy cessation [None]
  - Laboratory test abnormal [None]

NARRATIVE: CASE EVENT DATE: 20180401
